FAERS Safety Report 8712465 (Version 3)
Quarter: 2013Q2

REPORT INFORMATION
  Report Type: Report from Study
  Country: IT (occurrence: IT)
  Receive Date: 20120808
  Receipt Date: 20130528
  Transmission Date: 20140414
  Serious: Yes (Hospitalization)
  Sender: FDA-Public Use
  Company Number: PHHY2012IT067834

PATIENT
  Age: 34 Year
  Sex: Male
  Weight: 85 kg

DRUGS (2)
  1. NEORAL [Suspect]
     Indication: PSORIASIS
     Dosage: 250 MG, PER DAY
     Route: 048
     Dates: start: 20111206, end: 20120312
  2. NEORAL [Suspect]
     Indication: PSORIATIC ARTHROPATHY

REACTIONS (1)
  - Calculus urinary [Recovered/Resolved]
